FAERS Safety Report 15091577 (Version 1)
Quarter: 2018Q3

REPORT INFORMATION
  Report Type: Spontaneous
  Country: US (occurrence: US)
  Receive Date: 20180629
  Receipt Date: 20180629
  Transmission Date: 20181010
  Serious: No
  Sender: FDA-Public Use
  Company Number: US-AMGEN-USASP2016159399

PATIENT
  Age: 70 Year
  Sex: Female

DRUGS (5)
  1. VITAMIN K2 [Concomitant]
     Active Substance: MENAQUINONE 6
  2. CALCIUM PHOSPHATE [Concomitant]
     Active Substance: CALCIUM PHOSPHATE
  3. PROLIA [Suspect]
     Active Substance: DENOSUMAB
     Indication: OSTEOPOROSIS POSTMENOPAUSAL
     Dosage: UNK
     Route: 065
     Dates: start: 2014
  4. OSTEOCALCIN [Suspect]
     Active Substance: CALCITONIN SALMON
     Indication: PAIN
     Dosage: UNK
     Route: 065
  5. CALCIUM FLUORIDE [Concomitant]
     Active Substance: CALCIUM FLUORIDE

REACTIONS (7)
  - Diarrhoea [Recovered/Resolved]
  - Gingival recession [Unknown]
  - Migraine [Unknown]
  - Drug dose omission [Unknown]
  - Toothache [Unknown]
  - Dental caries [None]
  - Tooth disorder [Unknown]

NARRATIVE: CASE EVENT DATE: 20161023
